FAERS Safety Report 8946938 (Version 1)
Quarter: 2012Q4

REPORT INFORMATION
  Report Type: 
  Country: ES (occurrence: ES)
  Receive Date: 20121205
  Receipt Date: 20121205
  Transmission Date: 20130627
  Serious: Yes (Hospitalization)
  Sender: FDA-Public Use
  Company Number: ES-ELI_LILLY_AND_COMPANY-ES201211007352

PATIENT
  Sex: Female

DRUGS (2)
  1. FORSTEO [Suspect]
     Indication: OSTEOPOROSIS
     Dosage: 20 UNK, UNK
     Route: 058
     Dates: start: 201210, end: 201210
  2. MASDIL [Concomitant]
     Indication: HYPERTENSION
     Dosage: 120 mg, unknown

REACTIONS (1)
  - Tachycardia [Recovered/Resolved]
